FAERS Safety Report 4316470-3 (Version None)
Quarter: 2004Q1

REPORT INFORMATION
  Report Type: 
  Country: None (occurrence: None)
  Receive Date: 20040311
  Receipt Date: 20040223
  Transmission Date: 20041129
  Serious: Yes (Other)
  Sender: FDA-Public Use
  Company Number: BE-JNJFOC-20040200661

PATIENT
  Age: 51 Year
  Sex: Female

DRUGS (6)
  1. PROPULSID [Suspect]
     Indication: IMPAIRED GASTRIC EMPTYING
     Dosage: 5 MG, 4 IN 1 DAY, ORAL
     Route: 048
     Dates: start: 20030321, end: 20040123
  2. XANAX [Concomitant]
  3. INDERAL [Concomitant]
  4. ZOLPIDEM TARTRATE [Concomitant]
  5. PAROXETINE HCL [Concomitant]
  6. PARIET (RABEPRAZOLE SODIUM) [Concomitant]

REACTIONS (1)
  - ANGINA PECTORIS [None]
